FAERS Safety Report 22356556 (Version 1)
Quarter: 2023Q2

REPORT INFORMATION
  Report Type: Spontaneous
  Country: None (occurrence: PT)
  Receive Date: 20230523
  Receipt Date: 20230523
  Transmission Date: 20230721
  Serious: Yes (Hospitalization)
  Sender: FDA-Public Use
  Company Number: PT-Canton Laboratories, LLC-2141914

PATIENT
  Sex: Female

DRUGS (12)
  1. NAPROSYN [Suspect]
     Active Substance: NAPROXEN
  2. DICLOFENAC SODIUM [Concomitant]
     Active Substance: DICLOFENAC SODIUM
  3. ferro [Concomitant]
  4. SIMVASTATIN [Concomitant]
     Active Substance: SIMVASTATIN
  5. TAPENTADOL [Concomitant]
     Active Substance: TAPENTADOL
  6. LOSARTAN [Concomitant]
     Active Substance: LOSARTAN
  7. FUROSEMIDE [Concomitant]
     Active Substance: FUROSEMIDE
  8. GABAPENTIN [Concomitant]
     Active Substance: GABAPENTIN
  9. OMEPRAZOLE [Concomitant]
     Active Substance: OMEPRAZOLE
  10. METHOTREXATE (METHOTREXATE SODIUM) [Concomitant]
     Active Substance: METHOTREXATE SODIUM
  11. TOPIRAMATE [Concomitant]
     Active Substance: TOPIRAMATE
  12. BILOBAN [Concomitant]

REACTIONS (5)
  - Vomiting [Recovered/Resolved]
  - Malaise [Recovered/Resolved]
  - Acute kidney injury [Recovered/Resolved]
  - Nausea [Recovered/Resolved]
  - Tremor [Recovered/Resolved]

NARRATIVE: CASE EVENT DATE: 20211008
